FAERS Safety Report 9402060 (Version 3)
Quarter: 2013Q4

REPORT INFORMATION
  Report Type: Spontaneous
  Country: BR (occurrence: BR)
  Receive Date: 20130716
  Receipt Date: 20131021
  Transmission Date: 20140711
  Serious: Yes (Hospitalization, Other)
  Sender: FDA-Public Use
  Company Number: PHHY2013BR075014

PATIENT
  Age: 86 Year
  Sex: Female

DRUGS (1)
  1. EXFORGE HCT [Suspect]
     Dosage: 1 DF, UNK (VALS 160 MG/AMLO 5 MG/HCT12.5 MG)

REACTIONS (6)
  - Suicide attempt [Unknown]
  - Injury [Unknown]
  - Delirium [Unknown]
  - Headache [Unknown]
  - Blood pressure increased [Unknown]
  - Pain [Unknown]
